FAERS Safety Report 15794047 (Version 6)
Quarter: 2020Q2

REPORT INFORMATION
  Report Type: Spontaneous
  Country: US (occurrence: US)
  Receive Date: 20190107
  Receipt Date: 20200403
  Transmission Date: 20200713
  Serious: No
  Sender: FDA-Public Use
  Company Number: US-SA-2019SA003302

PATIENT
  Age: 59 Year
  Sex: Male

DRUGS (2)
  1. DUPIXENT [Suspect]
     Active Substance: DUPILUMAB
     Indication: DERMATITIS ATOPIC
     Dosage: 300 MG, QOW
     Route: 058
     Dates: start: 20180815
  2. DUPIXENT [Suspect]
     Active Substance: DUPILUMAB
     Dosage: 300 MG, QOW
     Route: 058
     Dates: start: 201808

REACTIONS (6)
  - Pain [Unknown]
  - Skin exfoliation [Unknown]
  - Eczema [Unknown]
  - Unevaluable event [Unknown]
  - Skin atrophy [Unknown]
  - Arthralgia [Unknown]

NARRATIVE: CASE EVENT DATE: 20181001
